FAERS Safety Report 9443506 (Version 1)
Quarter: 2013Q3

REPORT INFORMATION
  Report Type: Spontaneous
  Country: IT (occurrence: IT)
  Receive Date: 20130806
  Receipt Date: 20130806
  Transmission Date: 20140515
  Serious: Yes (Hospitalization)
  Sender: FDA-Public Use
  Company Number: IT-BAYER-2013-093404

PATIENT
  Age: 72 Year
  Sex: Female

DRUGS (1)
  1. ACETYLSALICYLIC ACID (} 100 MG) [Suspect]
     Indication: TOOTHACHE
     Dosage: 1 DF, ONCE
     Route: 048
     Dates: start: 20130702, end: 20130702

REACTIONS (4)
  - Asthmatic crisis [Recovered/Resolved]
  - Acute respiratory failure [Recovered/Resolved]
  - Dyspnoea [Recovered/Resolved]
  - Drug hypersensitivity [Recovered/Resolved]
